FAERS Safety Report 9177072 (Version 3)
Quarter: 2013Q2

REPORT INFORMATION
  Report Type: Spontaneous
  Country: US (occurrence: US)
  Receive Date: 20130321
  Receipt Date: 20130607
  Transmission Date: 20140414
  Serious: No
  Sender: FDA-Public Use
  Company Number: US-PFIZER INC-2013093295

PATIENT
  Age: 44 Year
  Sex: Female
  Weight: 110 kg

DRUGS (4)
  1. CHANTIX [Suspect]
     Indication: SMOKING CESSATION THERAPY
     Dosage: 0.5 MG DAILY
     Route: 048
  2. CHANTIX [Suspect]
     Dosage: 1 MG, 2X/DAY
  3. WELLBUTRIN [Concomitant]
     Dosage: UNK, 2X/DAY
  4. BUSPAR [Concomitant]
     Dosage: 5 MG, 3X/DAY

REACTIONS (6)
  - Malaise [Unknown]
  - Nausea [Unknown]
  - Hypophagia [Unknown]
  - Depression [Unknown]
  - Crying [Unknown]
  - Bedridden [Unknown]
